FAERS Safety Report 9675137 (Version 1)
Quarter: 2013Q4

REPORT INFORMATION
  Report Type: Spontaneous
  Country: US (occurrence: None)
  Receive Date: 20131106
  Receipt Date: 20131106
  Transmission Date: 20140711
  Serious: No
  Sender: FDA-Public Use
  Company Number: None

PATIENT
  Age: 80 Year
  Sex: Female
  Weight: 94.8 kg

DRUGS (12)
  1. TOVIAZ [Suspect]
     Indication: INCONTINENCE
     Dosage: 1 PILL; ONCE DAILY
     Route: 048
     Dates: start: 201306, end: 201306
  2. AMIODARONE [Concomitant]
  3. CARVEDILOL [Concomitant]
  4. CRESTOR [Concomitant]
  5. DONEPEZIL [Concomitant]
  6. LYRICA [Concomitant]
  7. OXYBUTYNIN [Concomitant]
  8. PANTOPRAZOLE [Concomitant]
  9. SERTRAZINE [Concomitant]
  10. VITAMIN B-6 [Concomitant]
  11. VITAMIN D3 [Concomitant]
  12. VITAMIN C [Concomitant]

REACTIONS (3)
  - Renal cancer [None]
  - Kidney rupture [None]
  - Renal haemorrhage [None]
